FAERS Safety Report 23228397 (Version 1)
Quarter: 2023Q4

REPORT INFORMATION
  Report Type: Other
  Country: None (occurrence: IR)
  Receive Date: 20231125
  Receipt Date: 20231125
  Transmission Date: 20240110
  Serious: Yes (Hospitalization, Other)
  Sender: FDA-Public Use
  Company Number: IR-BIOLOGICAL E. LTD-2148684

PATIENT
  Age: 23 Year
  Sex: Female

DRUGS (1)
  1. HEPARIN SODIUM [Suspect]
     Active Substance: HEPARIN SODIUM
     Indication: Product used for unknown indication
     Route: 058

REACTIONS (2)
  - Prosthetic cardiac valve thrombosis [Recovered/Resolved]
  - Exposure during pregnancy [Unknown]
